FAERS Safety Report 4517891-6 (Version None)
Quarter: 2004Q4

REPORT INFORMATION
  Report Type: 
  Country: None (occurrence: None)
  Receive Date: 20041203
  Receipt Date: 20041101
  Transmission Date: 20050328
  Serious: Yes (Hospitalization)
  Sender: FDA-Public Use
  Company Number: US-MERCK-0411USA00178

PATIENT
  Age: 76 Year
  Sex: Male

DRUGS (8)
  1. VIOXX [Suspect]
     Route: 048
     Dates: start: 20000201, end: 20040101
  2. MICARDIS [Concomitant]
     Indication: HYPERTENSION
     Route: 048
  3. ATENOLOL [Concomitant]
     Route: 048
  4. ZOCOR [Concomitant]
     Route: 048
  5. PROTONIX [Concomitant]
     Route: 065
  6. FLEXERIL [Concomitant]
     Route: 065
  7. DIAZEPAM [Concomitant]
     Route: 065
  8. CARAFATE [Concomitant]
     Route: 065

REACTIONS (8)
  - ATELECTASIS [None]
  - BRONCHITIS [None]
  - COMPUTERISED TOMOGRAM ABNORMAL [None]
  - FATIGUE [None]
  - INTERNATIONAL NORMALISED RATIO INCREASED [None]
  - PNEUMONIA [None]
  - PULMONARY EMBOLISM [None]
  - SCOLIOSIS [None]
